FAERS Safety Report 7642936-4 (Version None)
Quarter: 2011Q3

REPORT INFORMATION
  Report Type: 
  Country: None (occurrence: None)
  Receive Date: 20110728
  Receipt Date: 20110114
  Transmission Date: 20111222
  Serious: No
  Sender: FDA-Public Use
  Company Number: US-BAYER-2011-006347

PATIENT
  Sex: Female

DRUGS (4)
  1. CLARITIN [Suspect]
  2. CIPRO [Suspect]
     Indication: URINARY TRACT INFECTION
     Dosage: UNK
     Dates: start: 20110110, end: 20110112
  3. ASPIRIN [Concomitant]
     Dosage: 81 MG, UNK
  4. VYTORIN [Concomitant]

REACTIONS (1)
  - RASH [None]
